FAERS Safety Report 10529839 (Version 1)
Quarter: 2014Q4

REPORT INFORMATION
  Report Type: Spontaneous
  Country: IN (occurrence: IN)
  Receive Date: 20141021
  Receipt Date: 20141021
  Transmission Date: 20150528
  Serious: Yes (Hospitalization)
  Sender: FDA-Public Use
  Company Number: IN-SUN PHARMACEUTICAL INDUSTRIES LTD-2014SUN02355

PATIENT
  Age: 32 Year
  Sex: Male

DRUGS (3)
  1. ZOLPIDEM [Concomitant]
     Active Substance: ZOLPIDEM\ZOLPIDEM TARTRATE
     Indication: SLEEP DISORDER
  2. QUETIAPINE FUMARATE 25MG TABLETS [Suspect]
     Active Substance: QUETIAPINE FUMARATE
     Indication: MEMORY IMPAIRMENT
  3. QUETIAPINE FUMARATE 25MG TABLETS [Suspect]
     Active Substance: QUETIAPINE FUMARATE
     Indication: INSOMNIA
     Dosage: 300 MG, UNK
     Route: 065

REACTIONS (5)
  - Aggression [Recovering/Resolving]
  - Drug dependence [Unknown]
  - Impulsive behaviour [Recovering/Resolving]
  - Frustration [Recovering/Resolving]
  - Self-medication [Unknown]
